FAERS Safety Report 7440201-1 (Version None)
Quarter: 2011Q2

REPORT INFORMATION
  Report Type: 
  Country: None (occurrence: None)
  Receive Date: 20110427
  Receipt Date: 20110421
  Transmission Date: 20111010
  Serious: Yes (Other)
  Sender: FDA-Public Use
  Company Number: US-ROCHE-773115

PATIENT
  Sex: Female

DRUGS (1)
  1. ACTEMRA [Suspect]
     Indication: RHEUMATOID ARTHRITIS
     Dosage: FORM: INFUSION
     Route: 042
     Dates: start: 20110101, end: 20110301

REACTIONS (14)
  - DYSPNOEA [None]
  - HYPERHIDROSIS [None]
  - ATRIAL FIBRILLATION [None]
  - ABDOMINAL DISTENSION [None]
  - NASOPHARYNGITIS [None]
  - CHEST PAIN [None]
  - BLOOD CHOLESTEROL INCREASED [None]
  - URTICARIA [None]
  - PAIN [None]
  - NAUSEA [None]
  - DIZZINESS [None]
  - OROPHARYNGEAL PAIN [None]
  - FATIGUE [None]
  - MYALGIA [None]
